FAERS Safety Report 24797815 (Version 2)
Quarter: 2025Q1

REPORT INFORMATION
  Report Type: Report from Study
  Country: US (occurrence: US)
  Receive Date: 20250102
  Receipt Date: 20250122
  Transmission Date: 20250408
  Serious: No
  Sender: DECIPHERA PHARMACEUTICALS
  Company Number: US-DECIPHERA PHARMACEUTICALS LLC-2024US001038

PATIENT
  Age: 87 Year
  Sex: Male
  Weight: 64.898 kg

DRUGS (2)
  1. QINLOCK [Suspect]
     Active Substance: RIPRETINIB
     Indication: Malignant melanoma
     Dosage: 150 MILLIGRAM, QD
     Route: 048
     Dates: start: 20241125
  2. QINLOCK [Suspect]
     Active Substance: RIPRETINIB
     Indication: Metastases to lung
     Dosage: 150 MILLIGRAM, QD
     Route: 048

REACTIONS (8)
  - Sensory disturbance [Unknown]
  - Hypotension [Unknown]
  - Sensitive skin [Unknown]
  - Rash [Unknown]
  - Dry skin [Unknown]
  - Pruritus [Unknown]
  - Alopecia [Unknown]
  - Product use in unapproved indication [Unknown]

NARRATIVE: CASE EVENT DATE: 20240101
